FAERS Safety Report 20329420 (Version 2)
Quarter: 2022Q1

REPORT INFORMATION
  Report Type: Report from Study
  Country: US (occurrence: US)
  Receive Date: 20220112
  Receipt Date: 20220114
  Transmission Date: 20220423
  Serious: No
  Sender: FDA-Public Use
  Company Number: US-REGENERON PHARMACEUTICALS, INC.-2021-122030

PATIENT

DRUGS (1)
  1. CASIRIVIMAB\IMDEVIMAB [Suspect]
     Active Substance: CASIRIVIMAB\IMDEVIMAB
     Indication: Product used for unknown indication
     Dosage: , EITHER THE 4 DOSES (1200 MG) OF THE CASIRIVIMAB OR 4 DOSES OF THE IMDEVIMAB (1200 MG)
     Route: 065

REACTIONS (1)
  - Single component of a two-component product administered [Unknown]
